FAERS Safety Report 16133933 (Version 5)
Quarter: 2019Q4

REPORT INFORMATION
  Report Type: Report from Study
  Country: JP (occurrence: JP)
  Receive Date: 20190329
  Receipt Date: 20191227
  Transmission Date: 20200122
  Serious: Yes (Other)
  Sender: FDA-Public Use
  Company Number: JP-ACTELION-A-CH2019-188156

PATIENT
  Age: 44 Year
  Sex: Female

DRUGS (25)
  1. ADEMPAS [Suspect]
     Active Substance: RIOCIGUAT
     Dosage: 7.5 MG, QD
     Route: 048
  2. BERAPROST NA [Concomitant]
     Active Substance: BERAPROST SODIUM
  3. SPIRONOLACTONE. [Concomitant]
     Active Substance: SPIRONOLACTONE
  4. CARBOCISTEINE [Concomitant]
     Active Substance: CARBOCYSTEINE
  5. UPTRAVI [Suspect]
     Active Substance: SELEXIPAG
     Dosage: 1 MG, BID
     Route: 048
     Dates: start: 20190615, end: 20190621
  6. UPTRAVI [Suspect]
     Active Substance: SELEXIPAG
     Dosage: 1.2 MG, BID
     Route: 048
     Dates: start: 20190622
  7. ADEMPAS [Suspect]
     Active Substance: RIOCIGUAT
     Indication: PULMONARY HYPERTENSION
     Dosage: 2.5 MG, TID
     Route: 048
     Dates: start: 20180907, end: 20180920
  8. PLAVIX [Concomitant]
     Active Substance: CLOPIDOGREL BISULFATE
  9. UPTRAVI [Suspect]
     Active Substance: SELEXIPAG
     Indication: PULMONARY HYPERTENSION
     Dosage: 1.6 MG, BID
     Route: 048
     Dates: end: 20190509
  10. AMLODIN [Concomitant]
     Active Substance: AMLODIPINE BESYLATE
  11. OXYGEN. [Concomitant]
     Active Substance: OXYGEN
  12. NU-LOTAN [Concomitant]
     Active Substance: LOSARTAN POTASSIUM
  13. ADEMPAS [Suspect]
     Active Substance: RIOCIGUAT
     Dosage: 2 MG, TID
     Route: 048
     Dates: start: 20180921
  14. MAGNESIUM OXIDE. [Concomitant]
     Active Substance: MAGNESIUM OXIDE
  15. LUPRAC [Concomitant]
     Active Substance: TORSEMIDE
  16. SAMSCA [Concomitant]
     Active Substance: TOLVAPTAN
  17. BROTIZOLAM [Concomitant]
     Active Substance: BROTIZOLAM
  18. UPTRAVI [Suspect]
     Active Substance: SELEXIPAG
     Dosage: 0.8 MG, BID
     Route: 048
     Dates: start: 20190510, end: 20190614
  19. FRANCETIN T [Concomitant]
  20. BAYASPIRIN [Concomitant]
     Active Substance: ASPIRIN
  21. OPSUMIT [Suspect]
     Active Substance: MACITENTAN
     Indication: PULMONARY HYPERTENSION
     Dosage: 10 MG, QD
     Route: 048
     Dates: start: 20180907
  22. UPTRAVI [Suspect]
     Active Substance: SELEXIPAG
     Dosage: UNK
     Route: 048
     Dates: start: 20181127
  23. OMEPRAL [Concomitant]
     Active Substance: OMEPRAZOLE
  24. NEXIUM [Concomitant]
     Active Substance: ESOMEPRAZOLE MAGNESIUM
  25. URSODEOXYCHOLIC ACID [Concomitant]
     Active Substance: URSODIOL
     Dosage: UNK
     Dates: end: 20190906

REACTIONS (12)
  - Genital haemorrhage [Recovered/Resolved]
  - Abdominal pain upper [Recovering/Resolving]
  - Iron deficiency anaemia [Recovering/Resolving]
  - Hepatic function abnormal [Recovering/Resolving]
  - Blood pressure increased [Recovering/Resolving]
  - Decreased appetite [Recovering/Resolving]
  - Alanine aminotransferase increased [Recovering/Resolving]
  - Haemoptysis [Recovering/Resolving]
  - Aspartate aminotransferase increased [Recovering/Resolving]
  - Gamma-glutamyltransferase increased [Recovering/Resolving]
  - Transfusion [Unknown]
  - Pain in extremity [Recovering/Resolving]

NARRATIVE: CASE EVENT DATE: 20180921
